FAERS Safety Report 23305723 (Version 1)
Quarter: 2023Q4

REPORT INFORMATION
  Report Type: Report from Study
  Country: CO (occurrence: CO)
  Receive Date: 20231218
  Receipt Date: 20231218
  Transmission Date: 20240109
  Serious: Yes (Hospitalization)
  Sender: FDA-Public Use
  Company Number: CO-IPSEN Group, Research and Development-2023-21306

PATIENT
  Age: 42 Year
  Sex: Female
  Weight: 64 kg

DRUGS (3)
  1. LANREOTIDE ACETATE [Suspect]
     Active Substance: LANREOTIDE ACETATE
     Indication: Acromegaly
     Dosage: 1 UNIT EVERY 30 DAYS
     Route: 058
     Dates: start: 20230904
  2. ESOMEPRAZOLE [Concomitant]
     Active Substance: ESOMEPRAZOLE
     Dosage: 1 WEEK AFTER SOMATULINE/LANREOTIDE
  3. LEVOTHYROXINE [Concomitant]
     Active Substance: LEVOTHYROXINE
     Indication: Hypothyroidism
     Route: 048

REACTIONS (12)
  - Rhinitis allergic [Not Recovered/Not Resolved]
  - Influenza [Not Recovered/Not Resolved]
  - Nasal congestion [Not Recovered/Not Resolved]
  - Rhinalgia [Not Recovered/Not Resolved]
  - Insomnia [Not Recovered/Not Resolved]
  - Dizziness [Recovering/Resolving]
  - Hyperhidrosis [Recovering/Resolving]
  - Gastritis [Recovering/Resolving]
  - Abdominal distension [Recovering/Resolving]
  - Dyspnoea [Recovering/Resolving]
  - Product supply issue [Unknown]
  - Inappropriate schedule of product administration [Unknown]

NARRATIVE: CASE EVENT DATE: 20230905
